FAERS Safety Report 4660611-5 (Version None)
Quarter: 2005Q2

REPORT INFORMATION
  Report Type: 
  Country: None (occurrence: None)
  Receive Date: 20050512
  Receipt Date: 20050214
  Transmission Date: 20051028
  Serious: Yes (Hospitalization)
  Sender: FDA-Public Use
  Company Number: 2005AP01168

PATIENT
  Sex: Male
  Weight: 44 kg

DRUGS (3)
  1. IRESSA [Suspect]
     Indication: LUNG NEOPLASM MALIGNANT
     Route: 048
     Dates: start: 20041130, end: 20050207
  2. PREDONINE [Concomitant]
     Indication: LYMPHANGIOSIS CARCINOMATOSA
     Route: 048
     Dates: start: 20041208
  3. KLARICID [Concomitant]
     Indication: BRONCHITIS CHRONIC
     Route: 048
     Dates: start: 20041208

REACTIONS (2)
  - PYREXIA [None]
  - WHITE BLOOD CELL COUNT DECREASED [None]
